FAERS Safety Report 25589367 (Version 1)
Quarter: 2025Q3

REPORT INFORMATION
  Report Type: Spontaneous
  Country: EU (occurrence: EU)
  Receive Date: 20250722
  Receipt Date: 20250722
  Transmission Date: 20251020
  Serious: Yes (Death, Other)
  Sender: AMGEN
  Company Number: EU-AMGEN-DNKSP2025141892

PATIENT

DRUGS (2)
  1. ETANERCEPT [Suspect]
     Active Substance: ETANERCEPT
     Indication: Rheumatoid arthritis
     Route: 065
  2. ADALIMUMAB [Suspect]
     Active Substance: ADALIMUMAB
     Indication: Rheumatoid arthritis
     Route: 065

REACTIONS (6)
  - Neoplasm malignant [Unknown]
  - Death [Fatal]
  - Drug ineffective [Unknown]
  - Therapy non-responder [Unknown]
  - Adverse event [Unknown]
  - Infection [Unknown]
